FAERS Safety Report 6962681-8 (Version None)
Quarter: 2010Q3

REPORT INFORMATION
  Report Type: 
  Country: None (occurrence: None)
  Receive Date: 20100831
  Receipt Date: 20100819
  Transmission Date: 20110219
  Serious: Yes (Life-Threatening, Hospitalization)
  Sender: FDA-Public Use
  Company Number: DKLU1064510

PATIENT
  Age: 4 Year
  Sex: Male

DRUGS (3)
  1. SABRIL [Suspect]
     Indication: INFANTILE SPASMS
     Dosage: 1000 MG MILLIGRAM(S), 2 IN 1 D, ORAL
     Route: 048
     Dates: start: 20100517, end: 20100819
  2. KEPPRA [Concomitant]
  3. BANZEL [Concomitant]

REACTIONS (5)
  - CONVULSION [None]
  - DYSPNOEA [None]
  - HAEMATOCRIT DECREASED [None]
  - HAEMOGLOBIN DECREASED [None]
  - PSEUDOMONAS TEST POSITIVE [None]
